FAERS Safety Report 23615768 (Version 1)
Quarter: 2024Q1

REPORT INFORMATION
  Report Type: Spontaneous
  Country: HR (occurrence: HR)
  Receive Date: 20240311
  Receipt Date: 20240311
  Transmission Date: 20240410
  Serious: Yes (Hospitalization)
  Sender: FDA-Public Use
  Company Number: HR-TEVA-VS-3166879

PATIENT
  Age: 62 Year
  Sex: Male

DRUGS (10)
  1. POSACONAZOLE [Suspect]
     Active Substance: POSACONAZOLE
     Indication: Antifungal prophylaxis
     Route: 065
     Dates: start: 2023
  2. LETERMOVIR [Concomitant]
     Active Substance: LETERMOVIR
     Indication: Antiviral prophylaxis
     Route: 065
     Dates: start: 2023
  3. HYDROXYUREA [Concomitant]
     Active Substance: HYDROXYUREA
     Indication: Myelodysplastic syndrome
     Route: 065
     Dates: start: 2023
  4. BUSULFAN [Suspect]
     Active Substance: BUSULFAN
     Indication: Myelodysplastic syndrome
     Route: 065
     Dates: start: 2023
  5. ACYCLOVIR [Concomitant]
     Active Substance: ACYCLOVIR
     Indication: Antiviral prophylaxis
     Route: 065
     Dates: start: 2023
  6. SULFAMETHOXAZOLE\TRIMETHOPRIM [Concomitant]
     Active Substance: SULFAMETHOXAZOLE\TRIMETHOPRIM
     Indication: Antibiotic therapy
     Route: 065
     Dates: start: 2023
  7. AZACITIDINE [Concomitant]
     Active Substance: AZACITIDINE
     Indication: Myelodysplastic syndrome
     Route: 065
     Dates: start: 2023
  8. RUXOLITINIB [Concomitant]
     Active Substance: RUXOLITINIB
     Indication: Myelodysplastic syndrome
     Route: 065
     Dates: start: 2023
  9. AZITHROMYCIN [Concomitant]
     Active Substance: AZITHROMYCIN
     Indication: Antibiotic therapy
     Route: 065
     Dates: start: 2023
  10. ESOMEPRAZOLE [Concomitant]
     Active Substance: ESOMEPRAZOLE
     Indication: Product used for unknown indication
     Route: 065
     Dates: start: 2023

REACTIONS (3)
  - Primary adrenal insufficiency [Recovered/Resolved]
  - Skin hyperpigmentation [Unknown]
  - Hyperkalaemia [Recovering/Resolving]

NARRATIVE: CASE EVENT DATE: 20230701
